FAERS Safety Report 8122646-X (Version None)
Quarter: 2012Q1

REPORT INFORMATION
  Report Type: 
  Country: None (occurrence: None)
  Receive Date: 20120208
  Receipt Date: 20120131
  Transmission Date: 20120608
  Serious: Yes (Hospitalization, Other)
  Sender: FDA-Public Use
  Company Number: GB-BIOGENIDEC-2011BI004084

PATIENT
  Age: 42 Year
  Sex: Female

DRUGS (1)
  1. NATALIZUMAB [Suspect]
     Indication: MULTIPLE SCLEROSIS
     Route: 042
     Dates: start: 20061108, end: 20110126

REACTIONS (2)
  - BREAST CANCER METASTATIC [None]
  - METASTASES TO LYMPH NODES [None]
